FAERS Safety Report 10812097 (Version 1)
Quarter: 2015Q1

REPORT INFORMATION
  Report Type: Spontaneous
  Country: US (occurrence: None)
  Receive Date: 20150212
  Receipt Date: 20150212
  Transmission Date: 20150721
  Serious: Yes (Hospitalization, Disabling)
  Sender: FDA-Public Use
  Company Number: None

PATIENT
  Age: 37 Year
  Sex: Female
  Weight: 93.9 kg

DRUGS (1)
  1. CYMBALTA [Suspect]
     Active Substance: DULOXETINE HYDROCHLORIDE
     Indication: BIPOLAR DISORDER
     Dosage: TAKEN BY MOUTH

REACTIONS (26)
  - Influenza [None]
  - Scar [None]
  - Cholelithiasis [None]
  - Dyspepsia [None]
  - Vomiting projectile [None]
  - Diarrhoea [None]
  - Eye irritation [None]
  - Feeding disorder [None]
  - Abdominal pain [None]
  - Immune system disorder [None]
  - Blood glucose abnormal [None]
  - Tremor [None]
  - Nausea [None]
  - Pruritus [None]
  - Oropharyngeal pain [None]
  - Fungal infection [None]
  - Syncope [None]
  - Impaired work ability [None]
  - Rash [None]
  - Furuncle [None]
  - Decreased appetite [None]
  - Lymphadenitis [None]
  - Fatigue [None]
  - Vaginal cyst [None]
  - Tongue discolouration [None]
  - Weight decreased [None]
